FAERS Safety Report 11854421 (Version 1)
Quarter: 2015Q4

REPORT INFORMATION
  Report Type: Report from Study
  Country: ES (occurrence: ES)
  Receive Date: 20151221
  Receipt Date: 20151221
  Transmission Date: 20160305
  Serious: Yes (Hospitalization)
  Sender: FDA-Public Use
  Company Number: ES-009507513-1512ESP005437

PATIENT
  Age: 64 Year
  Sex: Female

DRUGS (5)
  1. TEMODAL [Suspect]
     Active Substance: TEMOZOLOMIDE
     Indication: GLIOBLASTOMA MULTIFORME
     Dosage: STRENGTH 2.5 MG/ML
     Route: 065
     Dates: start: 201308, end: 20130927
  2. FORTECORTIN (DEXAMETHASONE) [Concomitant]
     Active Substance: DEXAMETHASONE
     Dosage: 1/24
  3. FERRO SANOL [Concomitant]
     Active Substance: FERROUS SULFATE\GLYCINE
     Dosage: 1/24, GASTRO-RESISTANT CAPSULES
  4. KEPPRA [Concomitant]
     Active Substance: LEVETIRACETAM
     Dosage: 1/12
     Route: 048
     Dates: start: 201304
  5. THERAPEUTIC RADIOPHARMACEUTICAL (UNSPECIFIED) [Suspect]
     Active Substance: UNSPECIFIED INGREDIENT
     Indication: GLIOBLASTOMA MULTIFORME
     Dosage: 30 SESSIONS
     Route: 065
     Dates: start: 2013

REACTIONS (2)
  - Febrile neutropenia [Unknown]
  - Platelet count decreased [Unknown]

NARRATIVE: CASE EVENT DATE: 20131009
